FAERS Safety Report 8760576 (Version 1)
Quarter: 2012Q4

REPORT INFORMATION
  Report Type: 
  Country: US (occurrence: None)
  Receive Date: 20120829
  Receipt Date: 20120829
  Transmission Date: 20130627
  Serious: Yes (Hospitalization)
  Sender: FDA-Public Use
  Company Number: None

PATIENT
  Sex: Female
  Weight: 79.83 kg

DRUGS (3)
  1. 5-FLUOROURACIL [Suspect]
     Dates: end: 20060512
  2. LEUCOVORIN CALCIUM [Suspect]
     Dates: end: 20060512
  3. OXALIPLATIN [Suspect]
     Dates: end: 20060512

REACTIONS (1)
  - Cerebrovascular accident [None]
